FAERS Safety Report 24248050 (Version 1)
Quarter: 2024Q3

REPORT INFORMATION
  Report Type: Spontaneous
  Country: KR (occurrence: KR)
  Receive Date: 20240826
  Receipt Date: 20240826
  Transmission Date: 20241016
  Serious: Yes (Other)
  Sender: MYLAN
  Company Number: KR-MYLANLABS-2024M1078396

PATIENT
  Sex: Male

DRUGS (2)
  1. LYRICA [Suspect]
     Active Substance: PREGABALIN
     Indication: Pain
     Dosage: 150 MILLIGRAM, UNK
     Route: 065
  2. LYRICA [Suspect]
     Active Substance: PREGABALIN
     Dosage: 75 MILLIGRAM (AT REDUCED DOSE)
     Route: 065

REACTIONS (2)
  - Chronic kidney disease [Unknown]
  - Off label use [Unknown]
